FAERS Safety Report 25275061 (Version 2)
Quarter: 2025Q2

REPORT INFORMATION
  Report Type: Spontaneous
  Country: US (occurrence: US)
  Receive Date: 20250506
  Receipt Date: 20250509
  Transmission Date: 20250717
  Serious: No
  Sender: PFIZER
  Company Number: US-PFIZER INC-202500093000

PATIENT
  Sex: Female

DRUGS (1)
  1. ZAVEGEPANT [Suspect]
     Active Substance: ZAVEGEPANT

REACTIONS (1)
  - Dysgeusia [Unknown]
